FAERS Safety Report 6074444-9 (Version None)
Quarter: 2009Q1

REPORT INFORMATION
  Report Type: 
  Country: None (occurrence: None)
  Receive Date: 20090211
  Receipt Date: 20090204
  Transmission Date: 20090719
  Serious: Yes (Death)
  Sender: FDA-Public Use
  Company Number: US-GILEAD-2009-0020170

PATIENT
  Sex: Female

DRUGS (15)
  1. LETAIRIS [Suspect]
     Indication: PULMONARY ARTERIAL HYPERTENSION
     Route: 048
     Dates: start: 20081210
  2. WARFARIN SODIUM [Concomitant]
  3. LASIX [Concomitant]
  4. LISINOPRIL [Concomitant]
  5. PREDNISONE [Concomitant]
  6. SPIRIVA [Concomitant]
  7. ADVAIR DISKUS 100/50 [Concomitant]
  8. ALBUTEROL [Concomitant]
  9. SYNTHROID [Concomitant]
  10. ZETIA [Concomitant]
  11. PLAVIX [Concomitant]
  12. PREVACID [Concomitant]
  13. ZOLOFT [Concomitant]
  14. MORPHINE SULFATE [Concomitant]
  15. ATIVAN [Concomitant]

REACTIONS (2)
  - HYPOXIA [None]
  - PULMONARY FIBROSIS [None]
